FAERS Safety Report 25505766 (Version 1)
Quarter: 2025Q3

REPORT INFORMATION
  Report Type: Spontaneous
  Country: US (occurrence: US)
  Receive Date: 20250702
  Receipt Date: 20250702
  Transmission Date: 20251020
  Serious: Yes (Other)
  Sender: ACCORD
  Company Number: US-Accord-492432

PATIENT
  Age: 59 Year
  Sex: Female
  Weight: 51.07 kg

DRUGS (6)
  1. LEVOTHYROXINE SODIUM [Suspect]
     Active Substance: LEVOTHYROXINE SODIUM
     Indication: Product used for unknown indication
     Dates: start: 202505, end: 20250611
  2. KLONOPIN [Concomitant]
     Active Substance: CLONAZEPAM
  3. LINACLOTIDE [Concomitant]
     Active Substance: LINACLOTIDE
  4. CANNABIS SATIVA SUBSP. INDICA TOP [Concomitant]
     Active Substance: CANNABIS SATIVA SUBSP. INDICA TOP
  5. EMPAGLIFLOZIN [Concomitant]
     Active Substance: EMPAGLIFLOZIN
  6. PEPCID [Concomitant]
     Active Substance: FAMOTIDINE

REACTIONS (3)
  - Constipation [Unknown]
  - Hyperthyroidism [Unknown]
  - Product substitution issue [Unknown]

NARRATIVE: CASE EVENT DATE: 20250601
